FAERS Safety Report 16544993 (Version 2)
Quarter: 2019Q3

REPORT INFORMATION
  Report Type: Report from Study
  Country: None (occurrence: US)
  Receive Date: 20190709
  Receipt Date: 20190719
  Transmission Date: 20191004
  Serious: Yes (Hospitalization, Other)
  Sender: FDA-Public Use
  Company Number: US-ABBVIE-19K-163-2844821-00

PATIENT
  Age: 77 Year
  Sex: Male
  Weight: 92.16 kg

DRUGS (3)
  1. VENCLEXTA [Suspect]
     Active Substance: VENETOCLAX
     Indication: ACUTE MYELOID LEUKAEMIA
     Route: 048
     Dates: start: 20190617, end: 20190617
  2. VENCLEXTA [Suspect]
     Active Substance: VENETOCLAX
     Route: 048
     Dates: start: 20190619, end: 20190623
  3. VENCLEXTA [Suspect]
     Active Substance: VENETOCLAX
     Route: 048
     Dates: start: 20190618, end: 20190618

REACTIONS (4)
  - Nausea [Unknown]
  - Retching [Unknown]
  - Troponin increased [Unknown]
  - Sepsis [Unknown]

NARRATIVE: CASE EVENT DATE: 20190624
